FAERS Safety Report 19731511 (Version 2)
Quarter: 2023Q1

REPORT INFORMATION
  Report Type: Report from Study
  Country: FR (occurrence: FR)
  Receive Date: 20210820
  Receipt Date: 20230316
  Transmission Date: 20230417
  Serious: Yes (Hospitalization, Other)
  Sender: FDA-Public Use
  Company Number: FR-PFIZER INC-2021199594

PATIENT
  Age: 75 Year
  Sex: Female
  Weight: 50 kg

DRUGS (8)
  1. LETROZOLE [Suspect]
     Active Substance: LETROZOLE
     Indication: Breast cancer
     Dosage: 2.5 MILLIGRAM, QD (2.5 MG, 1X/DAY)
     Route: 065
     Dates: start: 20200722
  2. IBRANCE [Suspect]
     Active Substance: PALBOCICLIB
     Indication: Breast cancer
     Dosage: 125 MG, CYCLIC (ONCE DAILY, 21 DAYS ON/7 DAYS OFF)
     Route: 065
     Dates: start: 20200722
  3. IBRANCE [Suspect]
     Active Substance: PALBOCICLIB
     Dosage: 100 MG, CYCLIC (ONCE DAILY, 21 DAYS ON/7 DAYS OFF)
     Route: 065
     Dates: start: 20200821
  4. IBRANCE [Suspect]
     Active Substance: PALBOCICLIB
     Dosage: 75 MG, CYCLIC (ONCE DAILY, 21 DAYS ON/7 DAYS OFF)
     Route: 065
     Dates: start: 20201028
  5. LEVOTHYROXINE [Concomitant]
     Active Substance: LEVOTHYROXINE
     Indication: Hypothyroidism
     Dosage: 75 MICROGRAM, QD (75 UG, DAILY)
     Route: 048
  6. ENALAPRIL [Concomitant]
     Active Substance: ENALAPRIL
     Indication: Hypertension
     Dosage: UNK
     Route: 048
  7. ASPIRIN [Concomitant]
     Active Substance: ASPIRIN
     Indication: Cardiovascular disorder
     Dosage: UNK
     Route: 048
  8. FOLIC ACID [Concomitant]
     Active Substance: FOLIC ACID
     Indication: Anaemia macrocytic
     Dosage: 5 MILLIGRAM, QD (5 MG, DAILY)
     Route: 065

REACTIONS (3)
  - Anaemia [Recovered/Resolved]
  - Neutropenia [Recovered/Resolved]
  - Asthenia [Not Recovered/Not Resolved]

NARRATIVE: CASE EVENT DATE: 20200806
